FAERS Safety Report 9742230 (Version 1)
Quarter: 2013Q4

REPORT INFORMATION
  Report Type: Spontaneous
  Country: FR (occurrence: FR)
  Receive Date: 20131210
  Receipt Date: 20131210
  Transmission Date: 20140711
  Serious: Yes (Hospitalization)
  Sender: FDA-Public Use
  Company Number: CHNY2013FR002807

PATIENT
  Age: 69 Year
  Sex: Male

DRUGS (3)
  1. SCOPODERM TTS [Suspect]
     Indication: SALIVARY HYPERSECRETION
     Dosage: 1 MG, Q72H
     Route: 062
     Dates: start: 20130925, end: 20130929
  2. SCOPODERM TTS [Suspect]
     Indication: OFF LABEL USE
     Dosage: 2 MG, Q72H
     Route: 062
     Dates: start: 20130930, end: 20131001
  3. MYCOSTER//CICLOPIROX OLAMINE [Concomitant]
     Dosage: UNK

REACTIONS (1)
  - Delusion [Recovering/Resolving]
